FAERS Safety Report 11286687 (Version 2)
Quarter: 2016Q1

REPORT INFORMATION
  Report Type: Spontaneous
  Country: US (occurrence: US)
  Receive Date: 20150721
  Receipt Date: 20160125
  Transmission Date: 20160525
  Serious: No
  Sender: FDA-Public Use
  Company Number: US-UNITED THERAPEUTICS-UNT-2015-002976

PATIENT
  Age: 72 Year
  Sex: Female
  Weight: 55.78 kg

DRUGS (7)
  1. TYVASO [Suspect]
     Active Substance: TREPROSTINIL
     Dosage: UNK
  2. TYVASO [Suspect]
     Active Substance: TREPROSTINIL
     Dosage: UNK
  3. TYVASO [Suspect]
     Active Substance: TREPROSTINIL
     Dosage: UNK
  4. TYVASO [Suspect]
     Active Substance: TREPROSTINIL
     Indication: PULMONARY ARTERIAL HYPERTENSION
     Dosage: 18-54  MICROGRAMS, QID
     Dates: start: 20150309
  5. TYVASO [Suspect]
     Active Substance: TREPROSTINIL
     Dosage: UNK
  6. TYVASO [Suspect]
     Active Substance: TREPROSTINIL
     Dosage: UNK
  7. TYVASO [Suspect]
     Active Substance: TREPROSTINIL
     Dosage: UNK

REACTIONS (17)
  - Fatigue [Unknown]
  - Dyspnoea [Unknown]
  - Dry eye [Unknown]
  - Vasodilatation [Unknown]
  - Headache [Unknown]
  - Sinus disorder [Unknown]
  - Toothache [Unknown]
  - Facial pain [Unknown]
  - Epistaxis [Not Recovered/Not Resolved]
  - Nausea [Unknown]
  - Sinus headache [Unknown]
  - Eye irritation [Unknown]
  - Dysphonia [Unknown]
  - Myalgia [Unknown]
  - Nasal congestion [Unknown]
  - Lethargy [Unknown]
  - Cough [Unknown]

NARRATIVE: CASE EVENT DATE: 2015
